FAERS Safety Report 10194226 (Version 2)
Quarter: 2014Q3

REPORT INFORMATION
  Report Type: Spontaneous
  Country: US (occurrence: US)
  Receive Date: 20140525
  Receipt Date: 20140709
  Transmission Date: 20150326
  Serious: Yes (Death, Hospitalization)
  Sender: FDA-Public Use
  Company Number: US-SA-2014SA064306

PATIENT
  Age: 8 Month
  Sex: Male
  Weight: 6.5 kg

DRUGS (6)
  1. OMNICEF [Concomitant]
     Active Substance: CEFDINIR
     Dosage: 3.5 ML
     Route: 048
  2. OXYGEN. [Concomitant]
     Active Substance: OXYGEN
  3. CEFTRIAXONE. [Concomitant]
     Active Substance: CEFTRIAXONE
  4. SIMILAC [Concomitant]
     Active Substance: DEXTROSE\WATER
  5. CEREZYME [Suspect]
     Active Substance: IMIGLUCERASE
     Indication: GAUCHER^S DISEASE
     Dosage: 2 DOSES? DOSE:61.5 UNIT(S)/KILOGRAM BODYWEIGHT
     Route: 042
     Dates: start: 20140416, end: 20140501
  6. TYLENOL [Concomitant]
     Active Substance: ACETAMINOPHEN

REACTIONS (3)
  - Convulsion [Unknown]
  - Bronchiolitis [Fatal]
  - Acute respiratory failure [Unknown]

NARRATIVE: CASE EVENT DATE: 20140429
